FAERS Safety Report 7429616-5 (Version None)
Quarter: 2011Q2

REPORT INFORMATION
  Report Type: 
  Country: None (occurrence: None)
  Receive Date: 20110421
  Receipt Date: 20110414
  Transmission Date: 20111010
  Serious: Yes (Death)
  Sender: FDA-Public Use
  Company Number: B0713788A

PATIENT
  Sex: Male

DRUGS (5)
  1. CALONAL [Concomitant]
     Dosage: 200MG PER DAY
     Route: 048
     Dates: start: 20110413
  2. ALLELOCK [Concomitant]
     Dosage: 5MG PER DAY
     Route: 048
     Dates: start: 20110324
  3. MUCODYNE [Concomitant]
     Indication: PRODUCTIVE COUGH
     Dosage: 1000MG PER DAY
     Route: 048
     Dates: start: 20110413
  4. RELENZA [Suspect]
     Indication: INFLUENZA
     Dosage: 20MG PER DAY
     Route: 055
     Dates: start: 20110413
  5. ASTOMIN [Concomitant]
     Indication: COUGH
     Dosage: 20MG PER DAY
     Route: 048
     Dates: start: 20110413

REACTIONS (1)
  - COMPLETED SUICIDE [None]
